FAERS Safety Report 8014895-6 (Version None)
Quarter: 2011Q4

REPORT INFORMATION
  Report Type: 
  Country: None (occurrence: None)
  Receive Date: 20111229
  Receipt Date: 20111219
  Transmission Date: 20120403
  Serious: Yes (Hospitalization, Other)
  Sender: FDA-Public Use
  Company Number: JP-BAXTER-2011BH031132

PATIENT
  Age: 17 Year
  Sex: Male

DRUGS (14)
  1. CYTARABINE [Suspect]
     Indication: ACUTE LYMPHOCYTIC LEUKAEMIA
     Route: 029
     Dates: start: 20110607, end: 20110607
  2. METHOTREXATE [Suspect]
     Route: 029
     Dates: start: 20110614, end: 20110614
  3. URSO 250 [Concomitant]
     Indication: LIVER DISORDER
     Route: 048
     Dates: start: 20110322
  4. CYTARABINE [Suspect]
     Route: 041
     Dates: start: 20110614, end: 20110619
  5. PREDNISOLONE [Concomitant]
     Indication: ACUTE LYMPHOCYTIC LEUKAEMIA
     Route: 048
     Dates: start: 20110604, end: 20110606
  6. PINORUBIN [Suspect]
     Indication: ACUTE LYMPHOCYTIC LEUKAEMIA
     Route: 041
     Dates: start: 20110607, end: 20110608
  7. ALKERAN [Suspect]
     Indication: ACUTE LYMPHOCYTIC LEUKAEMIA
     Route: 048
     Dates: start: 20110607, end: 20110620
  8. CYTARABINE [Suspect]
     Route: 041
     Dates: start: 20110607, end: 20110612
  9. CYTARABINE [Suspect]
     Route: 029
     Dates: start: 20110614, end: 20110614
  10. HYDROCORTONE [Concomitant]
     Indication: ACUTE LYMPHOCYTIC LEUKAEMIA
     Route: 065
     Dates: start: 20110607, end: 20110607
  11. CYCLOPHOSPHAMIDE [Suspect]
     Route: 041
     Dates: start: 20110614, end: 20110614
  12. ANTIBIOTIC [Suspect]
     Indication: FEBRILE NEUTROPENIA
     Route: 041
     Dates: start: 20110616, end: 20110623
  13. CYCLOPHOSPHAMIDE [Suspect]
     Indication: ACUTE LYMPHOCYTIC LEUKAEMIA
     Route: 041
     Dates: start: 20110607, end: 20110607
  14. METHOTREXATE [Suspect]
     Indication: ACUTE LYMPHOCYTIC LEUKAEMIA
     Route: 029
     Dates: start: 20110607, end: 20110607

REACTIONS (3)
  - FEBRILE NEUTROPENIA [None]
  - POSTERIOR REVERSIBLE ENCEPHALOPATHY SYNDROME [None]
  - MUSCLE SPASMS [None]
